FAERS Safety Report 5463095-2 (Version None)
Quarter: 2007Q3

REPORT INFORMATION
  Report Type: 
  Country: None (occurrence: None)
  Receive Date: 20070918
  Receipt Date: 20070918
  Transmission Date: 20080115
  Serious: Yes (Other)
  Sender: FDA-Public Use
  Company Number: None

PATIENT
  Age: 76 Year
  Sex: Male
  Weight: 91.173 kg

DRUGS (1)
  1. SIMVASTATIN [Suspect]
     Indication: BLOOD CHOLESTEROL INCREASED
     Dosage: 20MG 1 A DAY @ BED TIME
     Dates: start: 20061220, end: 20070830

REACTIONS (4)
  - BALANCE DISORDER [None]
  - DISCOMFORT [None]
  - MEMORY IMPAIRMENT [None]
  - MUSCULAR WEAKNESS [None]
